FAERS Safety Report 16792785 (Version 1)
Quarter: 2019Q3

REPORT INFORMATION
  Report Type: Spontaneous
  Country: IN (occurrence: IN)
  Receive Date: 20190910
  Receipt Date: 20190910
  Transmission Date: 20191005
  Serious: Yes (Hospitalization)
  Sender: FDA-Public Use
  Company Number: PHHY2019IN207782

PATIENT
  Age: 22 Year
  Sex: Female
  Weight: 36.5 kg

DRUGS (13)
  1. CLOFAZIMINE [Suspect]
     Active Substance: CLOFAZIMINE
     Indication: PULMONARY TUBERCULOSIS
     Dosage: 100 MG, QD
     Route: 048
     Dates: start: 20190206
  2. METOCLOPRAMIDE. [Concomitant]
     Active Substance: METOCLOPRAMIDE
     Indication: PRODUCT USED FOR UNKNOWN INDICATION
     Dosage: UNK
     Route: 065
     Dates: start: 20190206
  3. ONDANSETRON [Concomitant]
     Active Substance: ONDANSETRON
     Indication: PRODUCT USED FOR UNKNOWN INDICATION
     Dosage: UNK
     Route: 065
     Dates: start: 20190206
  4. LORAZEPAM. [Concomitant]
     Active Substance: LORAZEPAM
     Indication: SLEEP DISORDER
     Dosage: UNK
     Route: 065
     Dates: start: 20100206
  5. LINEZOLID. [Suspect]
     Active Substance: LINEZOLID
     Indication: PULMONARY TUBERCULOSIS
     Dosage: 600 MG, QD
     Route: 048
     Dates: start: 20190206
  6. FERROUS SULFATE. [Concomitant]
     Active Substance: FERROUS SULFATE
     Indication: MINERAL SUPPLEMENTATION
     Dosage: UNK
     Route: 065
     Dates: start: 20190206
  7. GLYCOPYRRONIUM;INDACATEROL [Concomitant]
     Indication: CHRONIC OBSTRUCTIVE PULMONARY DISEASE
     Route: 065
  8. CO-AMOXICLAV [Suspect]
     Active Substance: AMOXICILLIN\CLAVULANATE POTASSIUM
     Indication: PULMONARY TUBERCULOSIS
     Dosage: 625 MG, BID
     Route: 048
     Dates: start: 20190206, end: 20190730
  9. DELAMANID [Suspect]
     Active Substance: DELAMANID
     Indication: PULMONARY TUBERCULOSIS
     Dosage: 100 MG, BID
     Route: 048
     Dates: start: 20190206
  10. MOXIFLOXACIN. [Suspect]
     Active Substance: MOXIFLOXACIN
     Indication: PULMONARY TUBERCULOSIS
     Dosage: 600 MG, QD
     Route: 048
     Dates: start: 20190206
  11. IMIPENEM [Suspect]
     Active Substance: IMIPENEM
     Indication: PULMONARY TUBERCULOSIS
     Dosage: 1 G, BID
     Route: 042
     Dates: start: 20190206, end: 20190730
  12. PYRIDOXINE [Concomitant]
     Active Substance: PYRIDOXINE
     Indication: NEUROPATHY PERIPHERAL
     Dosage: UNK
     Route: 065
     Dates: start: 20190206
  13. BEDAQUILINE [Suspect]
     Active Substance: BEDAQUILINE
     Indication: PULMONARY TUBERCULOSIS
     Dosage: 200 MG, TID
     Route: 048
     Dates: start: 20190206

REACTIONS (17)
  - Dyspnoea [Recovering/Resolving]
  - Nightmare [Unknown]
  - Asthenia [Unknown]
  - Blood chloride increased [Unknown]
  - Haemoglobin decreased [Unknown]
  - Monocyte count decreased [Unknown]
  - Insomnia [Unknown]
  - Weight decreased [Unknown]
  - Tachypnoea [Unknown]
  - Haematocrit decreased [Unknown]
  - Blood pressure decreased [Unknown]
  - Nausea [Unknown]
  - Palpitations [Unknown]
  - Chest pain [Recovered/Resolved]
  - Pain [Unknown]
  - Red cell distribution width increased [Unknown]
  - Incorrect product administration duration [Unknown]

NARRATIVE: CASE EVENT DATE: 20190725
